FAERS Safety Report 10052501 (Version 2)
Quarter: 2014Q2

REPORT INFORMATION
  Report Type: Report from Study
  Country: US (occurrence: US)
  Receive Date: 20140402
  Receipt Date: 20140402
  Transmission Date: 20141212
  Serious: Yes (Other)
  Sender: FDA-Public Use
  Company Number: US-ROCHE-1360521

PATIENT
  Sex: Male
  Weight: 97.61 kg

DRUGS (1)
  1. AVASTIN [Suspect]
     Indication: COLORECTAL CANCER METASTATIC
     Dosage: STOPPED 1 MONTH AGO
     Route: 042

REACTIONS (4)
  - Nervous system disorder [Unknown]
  - Malaise [Not Recovered/Not Resolved]
  - Amnesia [Not Recovered/Not Resolved]
  - Epistaxis [Recovering/Resolving]
